FAERS Safety Report 6930688-2 (Version None)
Quarter: 2010Q3

REPORT INFORMATION
  Report Type: 
  Country: None (occurrence: None)
  Receive Date: 20100809
  Receipt Date: 20091001
  Transmission Date: 20110219
  Serious: No
  Sender: FDA-Public Use
  Company Number: US-000480

PATIENT
  Sex: Male

DRUGS (3)
  1. DEGARELIX [Suspect]
     Indication: PROSTATE CANCER
     Dosage: (SUBCUTANEOUS)
     Route: 058
  2. ASPIRIN [Concomitant]
  3. MULTI-VITAMINS [Concomitant]

REACTIONS (1)
  - DRY SKIN [None]
